FAERS Safety Report 8596491-5 (Version None)
Quarter: 2012Q3

REPORT INFORMATION
  Report Type: 
  Country: None (occurrence: None)
  Receive Date: 20120815
  Receipt Date: 20120810
  Transmission Date: 20120928
  Serious: No
  Sender: FDA-Public Use
  Company Number: US-PFIZER INC-2012195880

PATIENT
  Age: 9 Year
  Sex: Female
  Weight: 34.014 kg

DRUGS (4)
  1. SINGULAIR [Concomitant]
     Indication: HYPERSENSITIVITY
     Dosage: UNK
  2. VENTOLIN [Concomitant]
     Indication: ASTHMA
     Dosage: UNK
  3. ALBUTEROL [Concomitant]
     Indication: ASTHMA
     Dosage: UNK
  4. GENOTROPIN [Suspect]
     Indication: GROWTH HORMONE DEFICIENCY
     Dosage: 1.4 MG, UNK
     Dates: start: 20120701, end: 20120801

REACTIONS (4)
  - HEADACHE [None]
  - GENERALISED OEDEMA [None]
  - PYREXIA [None]
  - INSOMNIA [None]
